FAERS Safety Report 18711732 (Version 1)
Quarter: 2021Q1

REPORT INFORMATION
  Report Type: Spontaneous
  Country: CA (occurrence: CA)
  Receive Date: 20210107
  Receipt Date: 20210107
  Transmission Date: 20210419
  Serious: Yes (Other)
  Sender: FDA-Public Use
  Company Number: CA-TEVA-2020-CA-1864692

PATIENT
  Age: 3 Month
  Sex: Male

DRUGS (8)
  1. ETOPOSIDE. [Suspect]
     Active Substance: ETOPOSIDE
     Indication: CHLOROMA
     Route: 065
  2. DAUNORUBICIN HYDROCHLORIDE FOR INJECTION [Suspect]
     Active Substance: DAUNORUBICIN HYDROCHLORIDE
     Indication: CHLOROMA
     Route: 065
  3. CYTARABINE INJECTION [Suspect]
     Active Substance: CYTARABINE
     Indication: CHLOROMA
     Route: 065
  4. CYTARABINE INJECTION [Suspect]
     Active Substance: CYTARABINE
     Indication: BRAIN SARCOMA
     Route: 037
  5. L?ASPARAGINASE [Suspect]
     Active Substance: ASPARAGINASE
     Indication: CHLOROMA
     Route: 065
  6. FLUDARABINE [Suspect]
     Active Substance: FLUDARABINE PHOSPHATE
     Indication: BRAIN SARCOMA
     Route: 065
  7. METHOTREXATE. [Suspect]
     Active Substance: METHOTREXATE
     Indication: BRAIN SARCOMA
     Route: 065
  8. HYDROCORTISONE SODIUM SUCCINATE INJ 1GM/VIAL [Suspect]
     Active Substance: HYDROCORTISONE SODIUM SUCCINATE
     Indication: BRAIN SARCOMA
     Route: 065

REACTIONS (8)
  - Infection [Unknown]
  - Pyrexia [Unknown]
  - Hydrocephalus [Unknown]
  - Leukaemia recurrent [Unknown]
  - Brain sarcoma [Unknown]
  - General physical health deterioration [Unknown]
  - Septic shock [Unknown]
  - Cerebellar tumour [Unknown]
